FAERS Safety Report 15516398 (Version 1)
Quarter: 2018Q4

REPORT INFORMATION
  Report Type: Spontaneous
  Country: US (occurrence: US)
  Receive Date: 20181011
  Receipt Date: 20181011
  Transmission Date: 20190205
  Serious: No
  Sender: FDA-Public Use
  Company Number: None

PATIENT
  Sex: Male

DRUGS (15)
  1. LEVOTHYROXIN [Concomitant]
     Active Substance: LEVOTHYROXINE
  2. MUPIROCIN. [Concomitant]
     Active Substance: MUPIROCIN
  3. TRAZODONE [Concomitant]
     Active Substance: TRAZODONE HYDROCHLORIDE
  4. DULOXETINE. [Concomitant]
     Active Substance: DULOXETINE
  5. LEVEMIR [Concomitant]
     Active Substance: INSULIN DETEMIR
  6. CAPECITABINE. [Suspect]
     Active Substance: CAPECITABINE
     Indication: PANCREATIC CARCINOMA
     Route: 048
     Dates: start: 20180906
  7. LOSARTIN [Concomitant]
     Active Substance: LOSARTAN
  8. PREDNISOLONE. [Concomitant]
     Active Substance: PREDNISOLONE
  9. NOVOLOG [Concomitant]
     Active Substance: INSULIN ASPART
  10. PROCHLORPER [Concomitant]
  11. CEPHALEXIN. [Concomitant]
     Active Substance: CEPHALEXIN
  12. ELIQUIS [Concomitant]
     Active Substance: APIXABAN
  13. FLUTICASONE. [Concomitant]
     Active Substance: FLUTICASONE
  14. FUROSEMIDE. [Concomitant]
     Active Substance: FUROSEMIDE
  15. TRAMADOL. [Concomitant]
     Active Substance: TRAMADOL

REACTIONS (1)
  - Cerebrovascular accident [None]
